FAERS Safety Report 14406999 (Version 1)
Quarter: 2018Q1

REPORT INFORMATION
  Report Type: Spontaneous
  Country: GB (occurrence: GB)
  Receive Date: 20180118
  Receipt Date: 20180118
  Transmission Date: 20180509
  Serious: Yes (Hospitalization)
  Sender: FDA-Public Use
  Company Number: GB-BAYER-2018-011166

PATIENT
  Age: 33 Year
  Sex: Female
  Weight: 69.85 kg

DRUGS (1)
  1. MIRENA [Suspect]
     Active Substance: LEVONORGESTREL
     Dosage: 20 MCG/24HR, CONT
     Route: 015

REACTIONS (4)
  - Thyroid cyst [Unknown]
  - Dyspnoea [Unknown]
  - Swelling [Unknown]
  - Goitre [Unknown]

NARRATIVE: CASE EVENT DATE: 2016
